FAERS Safety Report 6776097-0 (Version None)
Quarter: 2010Q2

REPORT INFORMATION
  Report Type: 
  Country: None (occurrence: None)
  Receive Date: 20100617
  Receipt Date: 20100607
  Transmission Date: 20101027
  Serious: Yes (Other)
  Sender: FDA-Public Use
  Company Number: US-GENENTECH-297617

PATIENT
  Sex: Male
  Weight: 47.166 kg

DRUGS (2)
  1. XOLAIR [Suspect]
     Indication: ASTHMA
     Dosage: 375 MG, Q2W
     Route: 058
     Dates: start: 20091125
  2. PROAIR HFA [Concomitant]
     Indication: ASTHMA
     Dosage: UNK

REACTIONS (2)
  - DYSPNOEA [None]
  - HEART RATE INCREASED [None]
